FAERS Safety Report 8987657 (Version 4)
Quarter: 2013Q1

REPORT INFORMATION
  Report Type: Report from Study
  Country: CA (occurrence: CA)
  Receive Date: 20121227
  Receipt Date: 20130314
  Transmission Date: 20140127
  Serious: Yes (Hospitalization)
  Sender: FDA-Public Use
  Company Number: CA-ABBOTT-12P-028-1023854-00

PATIENT
  Age: 47 Year
  Sex: Female

DRUGS (18)
  1. HUMIRA [Suspect]
     Indication: CROHN^S DISEASE
     Route: 058
     Dates: start: 20090303, end: 20090908
  2. HUMIRA [Suspect]
     Route: 058
     Dates: start: 20090909, end: 20111123
  3. BENTYLOL [Concomitant]
     Indication: ABDOMINAL PAIN
     Dates: start: 200905
  4. XAMIOL [Concomitant]
     Indication: PSORIASIS
     Dates: start: 20110125
  5. BETADERM [Concomitant]
     Indication: ECZEMA
     Dates: start: 20110125
  6. UREMOL HC [Concomitant]
     Indication: PSORIASIS
     Dates: start: 201106
  7. POTASSIUM CHLORIDE [Concomitant]
     Indication: DRUG THERAPY
     Dates: start: 20111125, end: 20111127
  8. FRAGMIN [Concomitant]
     Indication: PROPHYLAXIS
     Dosage: UI
     Dates: start: 20111125, end: 20111129
  9. SOLUMEDROL [Concomitant]
     Indication: CROHN^S DISEASE
     Dates: start: 20111125, end: 20111127
  10. PANTOLOC [Concomitant]
     Indication: PROPHYLAXIS
     Dates: start: 20111125, end: 20111130
  11. PREDNISONE [Concomitant]
     Indication: CROHN^S DISEASE
     Dates: start: 20111127, end: 20111127
  12. PREDNISONE [Concomitant]
     Dates: start: 20111128, end: 20111128
  13. PREDNISONE [Concomitant]
     Dates: start: 20111129, end: 20111206
  14. PREDNISONE [Concomitant]
     Dates: start: 20111207, end: 20111213
  15. PREDNISONE [Concomitant]
     Dates: start: 20111214, end: 20111220
  16. PREDNISONE [Concomitant]
     Dates: start: 20111221, end: 20111227
  17. PICO-SALAX [Concomitant]
     Indication: BOWEL PREPARATION
     Dosage: 1 PACK TWICE
     Dates: start: 20111129, end: 20111129
  18. PICO-SALAX [Concomitant]
     Indication: COLONOSCOPY

REACTIONS (1)
  - Small intestinal obstruction [Recovered/Resolved]
